FAERS Safety Report 7470714-8 (Version None)
Quarter: 2011Q2

REPORT INFORMATION
  Report Type: 
  Country: None (occurrence: None)
  Receive Date: 20110510
  Receipt Date: 20110426
  Transmission Date: 20111010
  Serious: Yes (Other)
  Sender: FDA-Public Use
  Company Number: PHHY2011US38137

PATIENT
  Age: 46 Year
  Sex: Female

DRUGS (2)
  1. OCTREOTIDE ACETATE [Suspect]
     Dosage: 50 UG, UNK
     Route: 042
  2. OCTREOTIDE ACETATE [Suspect]
     Dosage: 500 UG, UNK
     Route: 058

REACTIONS (6)
  - HYPERTENSIVE CRISIS [None]
  - RESTLESSNESS [None]
  - TACHYCARDIA [None]
  - ABDOMINAL PAIN [None]
  - FLUSHING [None]
  - HYPERTENSION [None]
